FAERS Safety Report 8832719 (Version 1)
Quarter: 2012Q4

REPORT INFORMATION
  Report Type: 
  Country: DE (occurrence: DE)
  Receive Date: 20121010
  Receipt Date: 20121010
  Transmission Date: 20130627
  Serious: Yes (Other)
  Sender: FDA-Public Use
  Company Number: DE-BIOGENIDEC-2011BI034192

PATIENT

DRUGS (1)
  1. TYSABRI [Suspect]
     Indication: MATERNAL EXPOSURE TIMING UNSPECIFIED
     Route: 064

REACTIONS (7)
  - Small for dates baby [Recovered/Resolved]
  - Transient tachypnoea of the newborn [Recovered/Resolved]
  - Blood incompatibility haemolytic anaemia of newborn [Recovered/Resolved]
  - Thrombocytopenia neonatal [Recovered/Resolved]
  - Erythroblastosis foetalis [Recovered/Resolved]
  - Transient hypogammaglobulinaemia of infancy [Recovered/Resolved]
  - Motor developmental delay [Not Recovered/Not Resolved]
